FAERS Safety Report 17070748 (Version 3)
Quarter: 2020Q1

REPORT INFORMATION
  Report Type: Spontaneous
  Country: US (occurrence: US)
  Receive Date: 20191125
  Receipt Date: 20200127
  Transmission Date: 20200409
  Serious: Yes (Hospitalization, Other)
  Sender: FDA-Public Use
  Company Number: US-PFIZER INC-2019504023

PATIENT
  Age: 60 Year
  Sex: Female
  Weight: 80.73 kg

DRUGS (1)
  1. AROMASIN [Suspect]
     Active Substance: EXEMESTANE
     Indication: BREAST CANCER FEMALE
     Dosage: UNK, CYCLIC (EVERY 21 DAYS)
     Dates: start: 200910, end: 201002

REACTIONS (3)
  - Cardiac disorder [Not Recovered/Not Resolved]
  - Reproductive tract disorder [Recovered/Resolved]
  - Cough [Not Recovered/Not Resolved]

NARRATIVE: CASE EVENT DATE: 201901
